FAERS Safety Report 7981531-4 (Version None)
Quarter: 2011Q4

REPORT INFORMATION
  Report Type: 
  Country: None (occurrence: None)
  Receive Date: 20111215
  Receipt Date: 20111212
  Transmission Date: 20120403
  Serious: Yes (Other)
  Sender: FDA-Public Use
  Company Number: AU-PFIZER INC-2011303487

PATIENT
  Sex: Female

DRUGS (1)
  1. DOSTINEX [Suspect]
     Indication: IN VITRO FERTILISATION
     Dosage: 7 CYCLES

REACTIONS (7)
  - MOOD ALTERED [None]
  - FATIGUE [None]
  - DEPRESSION [None]
  - VISION BLURRED [None]
  - ALOPECIA AREATA [None]
  - MYALGIA [None]
  - STRESS [None]
